FAERS Safety Report 16123755 (Version 30)
Quarter: 2023Q1

REPORT INFORMATION
  Report Type: Report from Study
  Country: GB (occurrence: GB)
  Receive Date: 20190327
  Receipt Date: 20230203
  Transmission Date: 20230418
  Serious: Yes (Other)
  Sender: FDA-Public Use
  Company Number: GB-EMA-DD-20181109-SAHU_K-170808

PATIENT
  Age: 51 Year
  Sex: Female

DRUGS (105)
  1. ANASTROZOLE [Suspect]
     Active Substance: ANASTROZOLE
     Indication: Breast cancer metastatic
     Dosage: 1 MILLIGRAM, QD
     Route: 048
     Dates: start: 20170127
  2. ANASTROZOLE [Suspect]
     Active Substance: ANASTROZOLE
     Indication: HER2 positive breast cancer
     Dosage: 1 GRAM, QD
     Route: 048
     Dates: start: 20170127
  3. ANASTROZOLE [Suspect]
     Active Substance: ANASTROZOLE
     Dosage: UNK
     Route: 048
  4. ANASTROZOLE [Suspect]
     Active Substance: ANASTROZOLE
     Dosage: 1 MILLIGRAM, QD
     Route: 048
     Dates: start: 20170127
  5. ANASTROZOLE [Suspect]
     Active Substance: ANASTROZOLE
     Dosage: UNK
  6. ANASTROZOLE [Suspect]
     Active Substance: ANASTROZOLE
     Dosage: 1 MILLIGRAM, QD
     Route: 048
     Dates: start: 20170127
  7. TRASTUZUMAB [Suspect]
     Active Substance: TRASTUZUMAB
     Indication: HER2 positive breast cancer
     Dosage: 525 MILLIGRAM, Q3W (LOADING DOSE)
     Route: 042
     Dates: start: 20160510, end: 20160510
  8. TRASTUZUMAB [Suspect]
     Active Substance: TRASTUZUMAB
     Indication: Breast cancer
     Dosage: 367.5 MILLIGRAM, Q3W
     Route: 042
     Dates: start: 20160920, end: 20170110
  9. TRASTUZUMAB [Suspect]
     Active Substance: TRASTUZUMAB
     Dosage: 388.5 MILLIGRAM, Q3W
     Route: 042
     Dates: start: 20160606, end: 20160606
  10. TRASTUZUMAB [Suspect]
     Active Substance: TRASTUZUMAB
     Dosage: 378 MILLIGRAM, Q3W
     Route: 042
     Dates: start: 20160627, end: 20160627
  11. TRASTUZUMAB [Suspect]
     Active Substance: TRASTUZUMAB
     Dosage: 388.5 MILLIGRAM, 3/WEEK
     Route: 042
     Dates: start: 20160718, end: 20160830
  12. TRASTUZUMAB [Suspect]
     Active Substance: TRASTUZUMAB
     Dosage: 357 MILLIGRAM, Q3W
     Route: 042
     Dates: start: 20170201, end: 20170426
  13. TRASTUZUMAB [Suspect]
     Active Substance: TRASTUZUMAB
     Dosage: 346.5 MILLIGRAM, Q3W
     Route: 042
     Dates: start: 20170517, end: 20170703
  14. TRASTUZUMAB [Suspect]
     Active Substance: TRASTUZUMAB
     Dosage: 336 MILLIGRAM, Q3W
     Route: 042
     Dates: start: 20170724, end: 20180904
  15. TRASTUZUMAB [Suspect]
     Active Substance: TRASTUZUMAB
     Dosage: 525 MILLIGRAM (LOADING DOSE)
     Route: 042
     Dates: end: 20160510
  16. TRASTUZUMAB [Suspect]
     Active Substance: TRASTUZUMAB
     Dosage: 378 MILLIGRAM
     Route: 042
     Dates: start: 20160627, end: 20160627
  17. TRASTUZUMAB [Suspect]
     Active Substance: TRASTUZUMAB
     Dosage: 388.5 MILLIGRAM
     Route: 042
     Dates: start: 20160606, end: 20160606
  18. TRASTUZUMAB [Suspect]
     Active Substance: TRASTUZUMAB
     Dosage: 336 MG, EVERY 3 WEEKS
     Route: 042
     Dates: end: 20180904
  19. TRASTUZUMAB [Suspect]
     Active Substance: TRASTUZUMAB
     Dosage: 525 MG 3/WEEK LOADING DOSE
     Route: 042
     Dates: end: 20160510
  20. TRASTUZUMAB [Suspect]
     Active Substance: TRASTUZUMAB
     Dosage: 336 MG, 3/WEEK
     Route: 042
     Dates: start: 20180925, end: 20200922
  21. TRASTUZUMAB [Suspect]
     Active Substance: TRASTUZUMAB
     Dosage: 378 MILLIGRAM, Q3W
     Route: 042
     Dates: start: 20201013
  22. TRASTUZUMAB [Suspect]
     Active Substance: TRASTUZUMAB
     Dosage: UNK
     Route: 042
     Dates: start: 20180510
  23. TRASTUZUMAB [Suspect]
     Active Substance: TRASTUZUMAB
     Dosage: 388.5 MILLIGRAM, Q3W
     Route: 042
     Dates: start: 20170724, end: 20180904
  24. TRASTUZUMAB [Suspect]
     Active Substance: TRASTUZUMAB
     Dosage: UNK
     Route: 042
     Dates: end: 20180510
  25. TRASTUZUMAB [Suspect]
     Active Substance: TRASTUZUMAB
     Dosage: 357 MILLIGRAM, EVERY 3 WEEK
     Route: 042
     Dates: start: 20170201, end: 20170426
  26. TRASTUZUMAB [Suspect]
     Active Substance: TRASTUZUMAB
     Dosage: 336 MG, 3/WEEK
     Route: 042
     Dates: start: 20180925, end: 20200922
  27. TRASTUZUMAB [Suspect]
     Active Substance: TRASTUZUMAB
     Dosage: 336 MILLIGRAM, Q3W
     Route: 042
     Dates: start: 20180915
  28. TRASTUZUMAB [Suspect]
     Active Substance: TRASTUZUMAB
     Dosage: 336 MILLIGRAM
     Route: 042
     Dates: start: 20200922
  29. TRASTUZUMAB [Suspect]
     Active Substance: TRASTUZUMAB
     Dosage: 336 MILLIGRAM, 3XW
     Route: 042
     Dates: start: 20170724
  30. TRASTUZUMAB [Suspect]
     Active Substance: TRASTUZUMAB
     Dosage: 346.5 MILLIGRAM, Q3W
     Route: 042
     Dates: start: 20170201, end: 20170426
  31. TRASTUZUMAB [Suspect]
     Active Substance: TRASTUZUMAB
     Dosage: 388.5 MILLIGRAM
     Route: 042
     Dates: start: 20160627, end: 20160627
  32. TRASTUZUMAB [Suspect]
     Active Substance: TRASTUZUMAB
     Dosage: 378 MILLIGRAM
     Route: 042
     Dates: start: 20160606, end: 20200606
  33. TRASTUZUMAB [Suspect]
     Active Substance: TRASTUZUMAB
     Dosage: 367.5 MILLIGRAM, 3/WEEK (ROUTE:042)/20-SEP-2016
     Route: 042
     Dates: start: 20160718, end: 20160830
  34. TRASTUZUMAB [Suspect]
     Active Substance: TRASTUZUMAB
     Dosage: 525 MILLIGRAM, Q3W
     Route: 042
     Dates: start: 20170724
  35. TRASTUZUMAB [Suspect]
     Active Substance: TRASTUZUMAB
     Dosage: 357 MILLIGRAM, Q3W
     Route: 042
     Dates: start: 20160920, end: 20170110
  36. TRASTUZUMAB [Suspect]
     Active Substance: TRASTUZUMAB
     Dosage: 388.5 MILLIGRAM, Q3W
     Route: 042
     Dates: start: 20200606, end: 20200606
  37. TRASTUZUMAB [Suspect]
     Active Substance: TRASTUZUMAB
     Dosage: 1165.5 MILLIGRAM, QW
     Route: 042
     Dates: start: 20160718, end: 20160830
  38. TRASTUZUMAB [Suspect]
     Active Substance: TRASTUZUMAB
     Dosage: 1008 MILLIGRAM, QW
     Route: 042
     Dates: start: 20170724
  39. TRASTUZUMAB [Suspect]
     Active Substance: TRASTUZUMAB
     Dosage: 336 MILLIGRAM, Q3W
     Route: 042
     Dates: start: 20180915
  40. TRASTUZUMAB [Suspect]
     Active Substance: TRASTUZUMAB
     Dosage: 346.5 MILLIGRAM, Q3W
     Route: 042
     Dates: start: 20170517, end: 20170703
  41. DOCETAXEL [Suspect]
     Active Substance: DOCETAXEL
     Indication: Breast cancer metastatic
     Dosage: 130 MILLIGRAM, Q3W
     Route: 042
     Dates: start: 20160511, end: 20160808
  42. DOCETAXEL [Suspect]
     Active Substance: DOCETAXEL
     Indication: HER2 positive breast cancer
     Dosage: 120 MILLIGRAM, Q3W
     Route: 042
     Dates: start: 20160808, end: 20160830
  43. DOCETAXEL [Suspect]
     Active Substance: DOCETAXEL
     Indication: Breast cancer
     Dosage: 360 MILLIGRAM, QW
     Route: 042
  44. DOCETAXEL [Suspect]
     Active Substance: DOCETAXEL
     Dosage: 130 MILLIGRAM, 3XW
     Route: 042
     Dates: start: 20160511, end: 20160808
  45. DOCETAXEL [Suspect]
     Active Substance: DOCETAXEL
     Dosage: 360 MILLIGRAM, QW
     Route: 042
     Dates: start: 20160808
  46. DOCETAXEL [Suspect]
     Active Substance: DOCETAXEL
     Dosage: 130 MILLIGRAM, 3 TIMES/WK (CUMULATIVE DOSE: 2200 MG)
     Route: 042
     Dates: start: 20160511
  47. DOCETAXEL [Suspect]
     Active Substance: DOCETAXEL
     Dosage: 390 MILLIGRAM, QW (390 MILLIGRAM, QWK )
     Route: 042
     Dates: start: 20160511, end: 20160808
  48. DOCETAXEL [Suspect]
     Active Substance: DOCETAXEL
     Dosage: 120 MILLIGRAM, QW
     Route: 042
     Dates: start: 20210808, end: 20210830
  49. DOCETAXEL [Suspect]
     Active Substance: DOCETAXEL
     Dosage: 130 MILLIGRAM, 3XW
     Route: 042
     Dates: start: 20160511, end: 20160808
  50. DOCETAXEL [Suspect]
     Active Substance: DOCETAXEL
     Dosage: 360 MILLIGRAM, QW
     Route: 042
     Dates: start: 20160808, end: 20160830
  51. DOCETAXEL [Suspect]
     Active Substance: DOCETAXEL
     Dosage: UNK
     Route: 042
  52. DOCETAXEL [Suspect]
     Active Substance: DOCETAXEL
     Dosage: 130 MILLIGRAM, QW
     Route: 042
     Dates: start: 20160511, end: 20160808
  53. PERTUZUMAB [Suspect]
     Active Substance: PERTUZUMAB
     Indication: HER2 positive breast cancer
     Dosage: 840 MILLIGRAM, Q3W/10-MAY-2016
     Route: 042
     Dates: start: 20160510, end: 20160510
  54. PERTUZUMAB [Suspect]
     Active Substance: PERTUZUMAB
     Indication: Breast cancer
     Dosage: 420 MILLIGRAM, Q3W/06-JUN-2016
     Route: 042
     Dates: start: 20160606, end: 20160606
  55. PERTUZUMAB [Suspect]
     Active Substance: PERTUZUMAB
     Dosage: 840 MILLIGRAM (LOADING DOSE)/10-MAY-2016
     Route: 042
     Dates: start: 20160510, end: 20160510
  56. PERTUZUMAB [Suspect]
     Active Substance: PERTUZUMAB
     Dosage: /06-JUN-2018/ 420 MILLIGRAM, Q3W
     Route: 042
  57. PERTUZUMAB [Suspect]
     Active Substance: PERTUZUMAB
     Dosage: 1260 MILLIGRAM, QW (1/WEEK (420 MILLIGRAM, 3/WEEK)06-JUN-2016
     Route: 042
  58. PERTUZUMAB [Suspect]
     Active Substance: PERTUZUMAB
     Dosage: UNK
     Route: 042
     Dates: start: 20180510
  59. PERTUZUMAB [Suspect]
     Active Substance: PERTUZUMAB
     Dosage: UNK
     Route: 042
     Dates: start: 20160606
  60. PERTUZUMAB [Suspect]
     Active Substance: PERTUZUMAB
     Dosage: UNK
     Route: 065
  61. PERTUZUMAB [Suspect]
     Active Substance: PERTUZUMAB
     Dosage: 840 MILLIGRAM, QW
     Route: 042
     Dates: start: 20160606
  62. PERTUZUMAB [Suspect]
     Active Substance: PERTUZUMAB
     Dosage: 1260 MILLIGRAM, QW  (420 MILLIGRAM, 3/WEEK)
     Route: 042
     Dates: start: 20160606
  63. PERTUZUMAB [Suspect]
     Active Substance: PERTUZUMAB
     Dosage: 840 MILLIGRAM, Q3W/
     Route: 042
     Dates: start: 20160510, end: 20160510
  64. PERTUZUMAB [Suspect]
     Active Substance: PERTUZUMAB
     Dosage: 420 MILLIGRAM, Q3W
     Route: 042
     Dates: start: 20160606
  65. NERATINIB [Suspect]
     Active Substance: NERATINIB
     Indication: Breast cancer
     Dosage: 336 MILLIGRAM, Q3W
     Route: 042
     Dates: start: 20180925, end: 20180925
  66. NERATINIB [Suspect]
     Active Substance: NERATINIB
     Dosage: 336 MILLIGRAM, Q3W
     Route: 042
     Dates: start: 20180925, end: 20200922
  67. NERATINIB [Suspect]
     Active Substance: NERATINIB
     Dosage: 378 MILLIGRAM, Q3W
     Route: 042
     Dates: start: 20201013
  68. NERATINIB [Suspect]
     Active Substance: NERATINIB
     Dosage: 378 MILLIGRAM, 3XW
     Route: 042
     Dates: start: 20201013
  69. NERATINIB [Suspect]
     Active Substance: NERATINIB
     Dosage: 336 MILLIGRAM, QW
     Route: 042
     Dates: start: 20200925, end: 20200925
  70. NERATINIB [Suspect]
     Active Substance: NERATINIB
     Dosage: 378 MILLIGRAM, QW
     Route: 042
     Dates: start: 20201013
  71. NERATINIB [Suspect]
     Active Substance: NERATINIB
     Dosage: 336 MILLIGRAM, QW
     Route: 042
     Dates: start: 20190925, end: 20190925
  72. ONTRUZANT [Suspect]
     Active Substance: TRASTUZUMAB-DTTB
     Indication: HER2 positive breast cancer
     Dosage: 336 MILLIGRAM, Q3W
     Route: 042
     Dates: start: 20180915
  73. ONTRUZANT [Suspect]
     Active Substance: TRASTUZUMAB-DTTB
     Indication: Breast cancer metastatic
     Dosage: 378 MILLIGRAM, Q3W
     Route: 042
     Dates: start: 20201013
  74. ONTRUZANT [Suspect]
     Active Substance: TRASTUZUMAB-DTTB
     Dosage: 336 MILLIGRAM
     Route: 042
     Dates: start: 20200922
  75. ONTRUZANT [Suspect]
     Active Substance: TRASTUZUMAB-DTTB
     Dosage: 336 MILLIGRAM, Q3W
     Route: 042
     Dates: start: 20180925
  76. ACETAMINOPHEN [Concomitant]
     Active Substance: ACETAMINOPHEN
     Dosage: UNK
     Route: 048
  77. ACETAMINOPHEN [Concomitant]
     Active Substance: ACETAMINOPHEN
     Dosage: UNK
     Route: 048
  78. ENOXAPARIN [Concomitant]
     Active Substance: ENOXAPARIN
     Dosage: 40 MILLIGRAM
     Route: 058
     Dates: start: 20161101, end: 20161101
  79. ENOXAPARIN [Concomitant]
     Active Substance: ENOXAPARIN
     Dosage: 40 MILLIGRAM, QD
     Route: 058
     Dates: start: 20161101, end: 20161101
  80. METOCLOPRAMIDE [Concomitant]
     Active Substance: METOCLOPRAMIDE
     Dosage: 10 MILLIGRAM
     Route: 048
     Dates: start: 20160511, end: 20160830
  81. METOCLOPRAMIDE [Concomitant]
     Active Substance: METOCLOPRAMIDE
     Dosage: 10 MILLIGRAM
     Route: 048
     Dates: start: 20160511, end: 20160830
  82. CHLORPHENIRAMINE MALEATE [Concomitant]
     Active Substance: CHLORPHENIRAMINE MALEATE
     Dosage: 4 MILLIGRAM
     Route: 048
     Dates: start: 20160627, end: 20160830
  83. MORPHINE [Concomitant]
     Active Substance: MORPHINE
     Dosage: 10 MILLIGRAM, QD
     Route: 048
     Dates: start: 20161101, end: 20161102
  84. MORPHINE [Concomitant]
     Active Substance: MORPHINE
     Dosage: 10 MILLIGRAM, QD
     Route: 048
     Dates: start: 20161101, end: 20161102
  85. MORPHINE [Concomitant]
     Active Substance: MORPHINE
     Dosage: 20 MILLIGRAM, QD
     Route: 048
     Dates: start: 20161101, end: 20161102
  86. MORPHINE [Concomitant]
     Active Substance: MORPHINE
     Dosage: 30 MILLIGRAM, QD
     Route: 065
  87. MORPHINE [Concomitant]
     Active Substance: MORPHINE
     Dosage: UNK
     Route: 065
  88. MORPHINE [Concomitant]
     Active Substance: MORPHINE
     Dosage: UNK UNK, QD
     Route: 065
  89. PREGABALIN [Concomitant]
     Active Substance: PREGABALIN
     Dosage: UNK
     Route: 065
  90. CYCLIZINE [Concomitant]
     Active Substance: CYCLIZINE
     Dosage: 50 MILLIGRAM
     Route: 048
     Dates: start: 20160627, end: 20160830
  91. CODEINE PHOSPHATE [Concomitant]
     Active Substance: CODEINE PHOSPHATE
     Indication: Product used for unknown indication
     Dosage: 60 MILLIGRAM
     Route: 048
     Dates: start: 20161101, end: 20161101
  92. MORPHINE SULFATE [Concomitant]
     Active Substance: MORPHINE SULFATE
     Dosage: 60 MILLIGRAM, QD
     Route: 048
  93. MORPHINE SULFATE [Concomitant]
     Active Substance: MORPHINE SULFATE
     Dosage: 120 MILLIGRAM, QD
     Route: 048
  94. MORPHINE SULFATE [Concomitant]
     Active Substance: MORPHINE SULFATE
     Dosage: 60 MILLIGRAM, BID
     Route: 048
  95. MORPHINE SULFATE [Concomitant]
     Active Substance: MORPHINE SULFATE
     Dosage: 10 MILLIGRAM, QD
     Route: 048
     Dates: start: 20161101, end: 20161102
  96. MORPHINE SULFATE [Concomitant]
     Active Substance: MORPHINE SULFATE
     Dosage: 60 MILLIGRAM, QD
     Route: 048
  97. MORPHINE SULFATE [Concomitant]
     Active Substance: MORPHINE SULFATE
     Dosage: 60 MILLIGRAM, QD
     Route: 048
     Dates: start: 20161101, end: 20161101
  98. MORPHINE SULFATE [Concomitant]
     Active Substance: MORPHINE SULFATE
     Dosage: 20 MILLIGRAM, QD
     Route: 048
  99. DEXAMETHASONE [Concomitant]
     Active Substance: DEXAMETHASONE
     Dosage: 8 MILLIGRAM
     Route: 048
     Dates: start: 20160511, end: 20160830
  100. IRON [Concomitant]
     Active Substance: IRON
     Dosage: UNK
     Route: 048
     Dates: start: 20190612
  101. IRON [Concomitant]
     Active Substance: IRON
     Dosage: UNK
     Route: 048
  102. DOMPERIDONE [Concomitant]
     Active Substance: DOMPERIDONE
     Dosage: UNK
     Route: 065
     Dates: start: 20191211
  103. RAMIPRIL [Concomitant]
     Active Substance: RAMIPRIL
     Indication: Ejection fraction decreased
     Dosage: 1 DOSAGE FORM
     Route: 048
     Dates: start: 20161005
  104. RAMIPRIL [Concomitant]
     Active Substance: RAMIPRIL
     Dosage: 1.25 MILLIGRAM, QD
     Route: 048
     Dates: start: 20190102
  105. RAMIPRIL [Concomitant]
     Active Substance: RAMIPRIL
     Dosage: UNK (QD)
     Route: 065
     Dates: start: 20161005

REACTIONS (9)
  - Lower respiratory tract infection [Recovered/Resolved]
  - Lacrimation increased [Recovered/Resolved]
  - Haemoglobin decreased [Recovered/Resolved]
  - Rhinorrhoea [Not Recovered/Not Resolved]
  - Neutropenia [Recovered/Resolved]
  - Anaemia [Recovered/Resolved]
  - Ejection fraction decreased [Not Recovered/Not Resolved]
  - Off label use [Unknown]
  - Intentional product use issue [Unknown]

NARRATIVE: CASE EVENT DATE: 20160715
